FAERS Safety Report 20906906 (Version 1)
Quarter: 2022Q2

REPORT INFORMATION
  Report Type: Spontaneous
  Country: US (occurrence: US)
  Receive Date: 20220602
  Receipt Date: 20220602
  Transmission Date: 20220721
  Serious: No
  Sender: FDA-Public Use
  Company Number: US-CARLSBAD-2022USCTISPO00002

PATIENT
  Age: 60 Year
  Sex: Female
  Weight: 120 kg

DRUGS (1)
  1. ACYCLOVIR [Suspect]
     Active Substance: ACYCLOVIR
     Indication: Oral herpes
     Route: 048
     Dates: start: 202112

REACTIONS (1)
  - Drug ineffective [Unknown]
